FAERS Safety Report 8264927-5 (Version None)
Quarter: 2012Q2

REPORT INFORMATION
  Report Type: 
  Country: None (occurrence: None)
  Receive Date: 20120406
  Receipt Date: 20120404
  Transmission Date: 20120825
  Serious: Yes (Death)
  Sender: FDA-Public Use
  Company Number: CH-JNJFOC-20120305840

PATIENT
  Sex: Female

DRUGS (1)
  1. STELARA [Suspect]
     Indication: PSORIASIS
     Route: 058
     Dates: start: 20100818, end: 20110325

REACTIONS (3)
  - COLECTOMY [None]
  - DIVERTICULITIS [None]
  - MYOCARDIAL INFARCTION [None]
